FAERS Safety Report 10491837 (Version 1)
Quarter: 2014Q4

REPORT INFORMATION
  Report Type: Spontaneous
  Country: US (occurrence: US)
  Receive Date: 20141002
  Receipt Date: 20141002
  Transmission Date: 20150528
  Serious: No
  Sender: FDA-Public Use
  Company Number: US-GLAXOSMITHKLINE-A1060537A

PATIENT
  Sex: Female

DRUGS (4)
  1. SYNTHROID [Concomitant]
     Active Substance: LEVOTHYROXINE SODIUM
  2. CLARINEX [Concomitant]
     Active Substance: DESLORATADINE
  3. CLARITIN [Concomitant]
     Active Substance: LORATADINE
  4. ADVAIR HFA [Suspect]
     Active Substance: FLUTICASONE PROPIONATE\SALMETEROL XINAFOATE
     Indication: ASTHMA
     Dosage: 1PUFF TWICE PER DAY
     Route: 055

REACTIONS (3)
  - Paraesthesia [Recovered/Resolved]
  - Feeling abnormal [Recovered/Resolved]
  - Hypoaesthesia [Recovered/Resolved]
